FAERS Safety Report 7992665 (Version 7)
Quarter: 2013Q4

REPORT INFORMATION
  Report Type: Spontaneous
  Country: US (occurrence: US)
  Receive Date: 20110615
  Receipt Date: 20131210
  Transmission Date: 20140711
  Serious: Yes (Hospitalization)
  Sender: FDA-Public Use
  Company Number: US-PFIZER INC-2011128832

PATIENT
  Age: 71 Year
  Sex: Female
  Weight: 58.5 kg

DRUGS (24)
  1. SUTENT [Suspect]
     Indication: RENAL CELL CARCINOMA
     Dosage: 37.5 MG, 28 DAYS ON AND 14 OFF
     Dates: start: 201004
  2. AMLODIPINE [Concomitant]
     Dosage: 5 MG, UNK
  3. ABILIFY [Concomitant]
     Dosage: UNK
  4. ASPIRIN [Concomitant]
     Dosage: 81 MG, UNK
  5. BENTYL [Concomitant]
     Dosage: 20 MG, AS NEEDED
  6. BONIVA [Concomitant]
     Dosage: MONTHLY
  7. CELEBREX [Concomitant]
     Dosage: UNK
  8. CITRACAL + D [Concomitant]
     Dosage: UNK
  9. CYMBALTA [Concomitant]
     Dosage: UNK
  10. CLONIDINE [Concomitant]
     Indication: HYPERTENSION
     Dosage: 0.1 MG, 1X/DAY
  11. CENTRUM [Concomitant]
     Dosage: UNK
  12. DIOVAN [Concomitant]
     Dosage: 40 MG, UNK
  13. HYDROCODONE [Concomitant]
     Dosage: UNK, PRN
  14. IMODIUM A-D [Concomitant]
     Dosage: 2 MG, UNK
  15. LORAZEPAM [Concomitant]
     Dosage: 1 MG, UNK
  16. LOMOTIL [Concomitant]
     Dosage: UNK, PRN
  17. NEXIUM [Concomitant]
     Dosage: 40 MG, UNK
  18. NORVASC [Concomitant]
     Dosage: UNK
  19. OXYBUTYNIN [Concomitant]
     Dosage: 5 MG, UNK
  20. PHENOBARBITOL [Concomitant]
     Dosage: 30 MG, UNK
  21. PRAVASTATIN [Concomitant]
     Dosage: UNK
  22. RANITIDINE [Concomitant]
     Dosage: 150 MG, UNK
  23. VALSARTAN/HYDROCHLOROTHIAZIDE [Concomitant]
     Indication: HYPERTENSION
     Dosage: 12.5MG/320 MG, 2X/DAY
  24. ZOLOFT [Concomitant]
     Dosage: UNK

REACTIONS (6)
  - Femur fracture [Recovering/Resolving]
  - Pain [Unknown]
  - Diarrhoea [Unknown]
  - Decubitus ulcer [Recovered/Resolved]
  - Pain in extremity [Unknown]
  - Insomnia [Unknown]
